FAERS Safety Report 13753909 (Version 1)
Quarter: 2017Q3

REPORT INFORMATION
  Report Type: Spontaneous
  Country: US (occurrence: US)
  Receive Date: 20170714
  Receipt Date: 20170714
  Transmission Date: 20171127
  Serious: Yes (Disabling)
  Sender: FDA-Public Use
  Company Number: None

PATIENT
  Age: 86 Year
  Sex: Female
  Weight: 63.5 kg

DRUGS (11)
  1. REQUIP [Concomitant]
     Active Substance: ROPINIROLE HYDROCHLORIDE
  2. LANAPRAST [Concomitant]
  3. TIKOSYN [Concomitant]
     Active Substance: DOFETILIDE
  4. TUMS [Concomitant]
     Active Substance: CALCIUM CARBONATE
  5. PROTONIX [Concomitant]
     Active Substance: PANTOPRAZOLE SODIUM
  6. ELIQUIS [Concomitant]
     Active Substance: APIXABAN
  7. LOPRESSOR [Concomitant]
     Active Substance: METOPROLOL TARTRATE
  8. MISC VITAMINS [Concomitant]
  9. PROLIA [Suspect]
     Active Substance: DENOSUMAB
     Indication: OSTEOPOROSIS
     Dosage: ROUTE - INJECTION?FREQUENCY - EVERY 6 MONTHS
     Dates: start: 20150622, end: 20151224
  10. NORVASC [Concomitant]
     Active Substance: AMLODIPINE BESYLATE
  11. PROBIOTIC [Concomitant]
     Active Substance: PROBIOTICS NOS

REACTIONS (11)
  - Myalgia [None]
  - Fatigue [None]
  - Dental caries [None]
  - Nausea [None]
  - Pruritus [None]
  - Urinary tract infection [None]
  - Tooth loss [None]
  - Tooth fracture [None]
  - Uveitis [None]
  - Rash papular [None]
  - Ear infection [None]

NARRATIVE: CASE EVENT DATE: 20150715
